FAERS Safety Report 4618933-X (Version None)
Quarter: 2005Q2

REPORT INFORMATION
  Report Type: 
  Country: None (occurrence: None)
  Receive Date: 20050302
  Receipt Date: 20040712
  Transmission Date: 20051028
  Serious: Yes (Death, Hospitalization)
  Sender: FDA-Public Use
  Company Number: 1199843772

PATIENT
  Age: 32 Year
  Sex: Male

DRUGS (1)
  1. TRASYLOL [Suspect]
     Indication: HAEMORRHAGE
     Dosage: INTRAVENOUS
     Route: 042
     Dates: start: 19981114

REACTIONS (3)
  - ANAPHYLACTIC SHOCK [None]
  - CARDIOGENIC SHOCK [None]
  - SHOCK [None]
